FAERS Safety Report 6277051-8 (Version None)
Quarter: 2009Q3

REPORT INFORMATION
  Report Type: 
  Country: None (occurrence: None)
  Receive Date: 20090722
  Receipt Date: 20081209
  Transmission Date: 20100115
  Serious: No
  Sender: FDA-Public Use
  Company Number: US-BRISTOL-MYERS SQUIBB COMPANY-14437552

PATIENT
  Age: 43 Year
  Sex: Female

DRUGS (3)
  1. COUMADIN [Suspect]
     Dosage: ALSO TAKEN 7.5MG.
  2. LOVENOX [Suspect]
     Indication: DEEP VEIN THROMBOSIS
     Dates: start: 20081110
  3. DIAZEPAM [Concomitant]

REACTIONS (2)
  - INTERNATIONAL NORMALISED RATIO DECREASED [None]
  - OEDEMA PERIPHERAL [None]
